FAERS Safety Report 7234914-4 (Version None)
Quarter: 2011Q1

REPORT INFORMATION
  Report Type: 
  Country: None (occurrence: None)
  Receive Date: 20110120
  Receipt Date: 20110110
  Transmission Date: 20110831
  Serious: Yes (Other)
  Sender: FDA-Public Use
  Company Number: IE-JNJFOC-20110102824

PATIENT
  Age: 80 Year
  Sex: Female

DRUGS (1)
  1. CAELYX [Suspect]
     Indication: BREAST CANCER RECURRENT
     Route: 042

REACTIONS (3)
  - SKIN EXFOLIATION [None]
  - SKIN CHAPPED [None]
  - BLISTER [None]
